FAERS Safety Report 5796212-5 (Version None)
Quarter: 2008Q3

REPORT INFORMATION
  Report Type: 
  Country: None (occurrence: None)
  Receive Date: 20080701
  Receipt Date: 20080623
  Transmission Date: 20090109
  Serious: Yes (Life-Threatening, Other)
  Sender: FDA-Public Use
  Company Number: GB-AVENTIS-200813182EU

PATIENT
  Age: 68 Year
  Sex: Female

DRUGS (8)
  1. FUROSEMIDE [Suspect]
     Dates: start: 20071120
  2. RAMIPRIL [Suspect]
     Route: 048
     Dates: start: 20070918, end: 20080115
  3. RAMIPRIL [Suspect]
     Route: 048
     Dates: start: 20080115, end: 20080301
  4. DIHYDROCODEINE [Concomitant]
     Route: 048
     Dates: start: 19910101
  5. IBUROFEN [Concomitant]
     Route: 048
     Dates: start: 20060101
  6. LEVOTHYROXINE SODIUM [Concomitant]
     Indication: HYPOTHYROIDISM
     Route: 048
     Dates: start: 20050101
  7. OMEPRAZOLE [Concomitant]
     Indication: PROPHYLAXIS AGAINST GASTROINTESTINAL ULCER
     Route: 048
     Dates: start: 20060101
  8. TIBOLONE [Concomitant]
     Route: 048
     Dates: start: 19970101

REACTIONS (1)
  - BRONCHOSPASM [None]
